FAERS Safety Report 4335203-8 (Version None)
Quarter: 2004Q1

REPORT INFORMATION
  Report Type: 
  Country: None (occurrence: None)
  Receive Date: 20040329
  Receipt Date: 20031201
  Transmission Date: 20041129
  Serious: No
  Sender: FDA-Public Use
  Company Number: 03P-163-0243163-00

PATIENT
  Age: 67 Year
  Sex: Male

DRUGS (7)
  1. HUMIRA [Suspect]
     Indication: RHEUMATOID ARTHRITIS
     Dosage: 40 MG, 1 IN 2, SUBCUTANEOUS
     Route: 058
     Dates: start: 20031120
  2. PREDNISONE [Concomitant]
  3. PIROXICAM [Concomitant]
  4. ESOMEPRAZOLE [Concomitant]
  5. LOPERAMIDE HYDROCHLORIDE [Concomitant]
  6. METHOTREXATE SODIUM [Concomitant]
  7. ENALAPRIL MALEATE [Concomitant]

REACTIONS (3)
  - CONDITION AGGRAVATED [None]
  - FATIGUE [None]
  - HYPOAESTHESIA [None]
